FAERS Safety Report 15352105 (Version 4)
Quarter: 2018Q4

REPORT INFORMATION
  Report Type: Spontaneous
  Country: US (occurrence: US)
  Receive Date: 20180905
  Receipt Date: 20181201
  Transmission Date: 20190204
  Serious: No
  Sender: FDA-Public Use
  Company Number: US-PFIZER INC-2018353990

PATIENT
  Age: 69 Year
  Sex: Female

DRUGS (10)
  1. DOCETAXEL. [Suspect]
     Active Substance: DOCETAXEL
     Indication: BREAST CANCER FEMALE
     Dosage: 100 MG, EVERY 3 WEEKS CYCLIC FOR 3 CYCLES
     Dates: start: 20120501, end: 20120611
  2. DOCETAXEL SANDOZ [Suspect]
     Active Substance: DOCETAXEL
     Indication: BREAST CANCER FEMALE
     Dosage: 100 MG, CYCLIC (NUMBER OF CYCLES: 03), EVERY THREE WEEKS
     Dates: start: 20120501, end: 20120611
  3. TAXOTERE [Suspect]
     Active Substance: DOCETAXEL
     Indication: BREAST CANCER FEMALE
     Dosage: 100 MG, EVERY 3 WEEKS CYCLIC FOR 3 CYCLES
     Dates: start: 20120501, end: 20120611
  4. DOCEFREZ [Suspect]
     Active Substance: DOCETAXEL ANHYDROUS
     Indication: BREAST CANCER FEMALE
     Dosage: 100 MG, CYCLIC (NUMBER OF CYCLES: 03), EVERY THREE WEEKS
     Dates: start: 20120501, end: 20120611
  5. CYTOXAN [Concomitant]
     Active Substance: CYCLOPHOSPHAMIDE
  6. ELLENCE [Concomitant]
     Active Substance: EPIRUBICIN HYDROCHLORIDE
     Indication: CHEMOTHERAPY
     Dosage: UNK
  7. DOCETAXEL ACCORD [Suspect]
     Active Substance: DOCETAXEL
     Indication: BREAST CANCER FEMALE
     Dosage: 100 MG, CYCLIC (NUMBER OF CYCLES: 03), EVERY THREE WEEKS
     Dates: start: 20120501, end: 20120611
  8. DOCEFREZ [Suspect]
     Active Substance: DOCETAXEL ANHYDROUS
     Indication: BREAST CANCER FEMALE
     Dosage: 100 MG, CYCLIC (NUMBER OF CYCLES: 03), EVERY THREE WEEKS
     Dates: start: 20120501, end: 20120611
  9. ELUDEX [Concomitant]
     Indication: CHEMOTHERAPY
     Dosage: UNK
  10. NEOSAR [Concomitant]
     Active Substance: CYCLOPHOSPHAMIDE
     Indication: CHEMOTHERAPY
     Dosage: UNK

REACTIONS (1)
  - Alopecia [Not Recovered/Not Resolved]

NARRATIVE: CASE EVENT DATE: 201301
